FAERS Safety Report 4297173-0 (Version None)
Quarter: 2004Q1

REPORT INFORMATION
  Report Type: 
  Country: None (occurrence: None)
  Receive Date: 20040213
  Receipt Date: 20040203
  Transmission Date: 20041129
  Serious: Yes (Hospitalization)
  Sender: FDA-Public Use
  Company Number: TEST00204000122

PATIENT
  Age: 9 Month
  Sex: Female

DRUGS (1)
  1. ANDROGEL [Suspect]
     Indication: ACCIDENTAL EXPOSURE
     Dosage: DAILY TD
     Route: 062

REACTIONS (3)
  - ACCIDENTAL EXPOSURE [None]
  - BLOOD TESTOSTERONE DECREASED [None]
  - ENLARGED CLITORIS [None]
